FAERS Safety Report 7212758-7 (Version None)
Quarter: 2010Q4

REPORT INFORMATION
  Report Type: 
  Country: None (occurrence: None)
  Receive Date: 20101227
  Receipt Date: 20101213
  Transmission Date: 20110411
  Serious: Yes (Death)
  Sender: FDA-Public Use
  Company Number: AE 2009-026

PATIENT
  Age: 53 Year
  Sex: Male

DRUGS (2)
  1. FAZACLO ODT [Suspect]
     Indication: SCHIZOPHRENIA, PARANOID TYPE
     Dosage: 300 MG DAILY PO
     Route: 048
     Dates: start: 20080829, end: 20081217
  2. LITHIUM [Concomitant]

REACTIONS (5)
  - ARTERIOSCLEROSIS [None]
  - BRONCHOPNEUMONIA [None]
  - CARDIOMEGALY [None]
  - OBESITY [None]
  - REFUSAL OF TREATMENT BY PATIENT [None]
